FAERS Safety Report 15084376 (Version 1)
Quarter: 2018Q2

REPORT INFORMATION
  Report Type: Spontaneous
  Country: CA (occurrence: CA)
  Receive Date: 20180628
  Receipt Date: 20180628
  Transmission Date: 20180711
  Serious: Yes (Other)
  Sender: FDA-Public Use
  Company Number: CA-ASTRAZENECA-2018SE81992

PATIENT
  Age: 55 Year
  Sex: Female

DRUGS (5)
  1. FULVESTRANT. [Suspect]
     Active Substance: FULVESTRANT
     Dosage: UNKNOWN
     Route: 030
  2. CAPECITABINE. [Concomitant]
     Active Substance: CAPECITABINE
     Dates: start: 2015, end: 2018
  3. TAMOXIFEN CITRATE. [Suspect]
     Active Substance: TAMOXIFEN CITRATE
     Route: 048
     Dates: start: 2013, end: 201412
  4. IBRANCE [Suspect]
     Active Substance: PALBOCICLIB
     Route: 048
  5. LETROZOLE. [Concomitant]
     Active Substance: LETROZOLE
     Dates: start: 2014, end: 201507

REACTIONS (3)
  - Bone pain [Unknown]
  - Off label use [Unknown]
  - Malignant neoplasm progression [Unknown]

NARRATIVE: CASE EVENT DATE: 2018
